FAERS Safety Report 5870686-3 (Version None)
Quarter: 2008Q3

REPORT INFORMATION
  Report Type: 
  Country: None (occurrence: None)
  Receive Date: 20080904
  Receipt Date: 20080904
  Transmission Date: 20090109
  Serious: Yes (Hospitalization)
  Sender: FDA-Public Use
  Company Number: PHEH1996US07561

PATIENT
  Sex: Female
  Weight: 55 kg

DRUGS (7)
  1. NEORAL [Suspect]
     Route: 048
     Dates: start: 19941215
  2. ACYCLOVIR [Concomitant]
  3. IMURAN [Concomitant]
     Dosage: UNSPECIFIED
     Route: 065
  4. PREDNISONE [Concomitant]
     Dosage: UNSPECIFIED
     Route: 065
  5. BACTRIM [Concomitant]
  6. NIFEDIPINE [Concomitant]
  7. LABETALOL HCL [Concomitant]

REACTIONS (3)
  - CYTOMEGALOVIRUS INFECTION [None]
  - PERINEPHRIC ABSCESS [None]
  - SEPSIS [None]
